FAERS Safety Report 7569567-9 (Version None)
Quarter: 2011Q2

REPORT INFORMATION
  Report Type: 
  Country: None (occurrence: None)
  Receive Date: 20110624
  Receipt Date: 20110613
  Transmission Date: 20111010
  Serious: Yes (Hospitalization)
  Sender: FDA-Public Use
  Company Number: IT-TEVA-286927ISR

PATIENT
  Age: 46 Year
  Sex: Female

DRUGS (7)
  1. FLUOXETINE HCL [Suspect]
  2. HOODIA GORDONII [Suspect]
  3. SERTRALINE HYDROCHLORIDE [Suspect]
  4. MA HUANG [Suspect]
  5. BUSPIRONE HCL [Suspect]
  6. COLEUS FORSKOHLII (GALENIC PRODUCT) [Suspect]
  7. SIBUTRAMINE HYDROCHLORIDE MONOHYDRATE [Suspect]

REACTIONS (1)
  - ANTICHOLINERGIC SYNDROME [None]
